FAERS Safety Report 14266698 (Version 22)
Quarter: 2025Q2

REPORT INFORMATION
  Report Type: Report from Study
  Country: CA (occurrence: CA)
  Receive Date: 20171211
  Receipt Date: 20250603
  Transmission Date: 20250717
  Serious: Yes (Hospitalization, Other)
  Sender: ROCHE
  Company Number: CA-002147023-PHHY2017CA168761

PATIENT
  Age: 58 Year
  Sex: Female

DRUGS (23)
  1. XOLAIR [Suspect]
     Active Substance: OMALIZUMAB
     Indication: Asthma
     Route: 058
     Dates: start: 20171031
  2. XOLAIR [Suspect]
     Active Substance: OMALIZUMAB
     Indication: Psoriasis
     Route: 058
     Dates: start: 20171114
  3. XOLAIR [Suspect]
     Active Substance: OMALIZUMAB
     Route: 058
     Dates: start: 20180122
  4. XOLAIR [Suspect]
     Active Substance: OMALIZUMAB
     Route: 058
     Dates: start: 20180515
  5. XOLAIR [Suspect]
     Active Substance: OMALIZUMAB
     Route: 058
     Dates: start: 20181009
  6. XOLAIR [Suspect]
     Active Substance: OMALIZUMAB
     Route: 058
     Dates: start: 20181106
  7. XOLAIR [Suspect]
     Active Substance: OMALIZUMAB
     Route: 058
     Dates: start: 20181204
  8. XOLAIR [Suspect]
     Active Substance: OMALIZUMAB
     Route: 058
     Dates: start: 20190102
  9. XOLAIR [Suspect]
     Active Substance: OMALIZUMAB
     Route: 058
     Dates: start: 20190129
  10. XOLAIR [Suspect]
     Active Substance: OMALIZUMAB
     Route: 058
     Dates: start: 20190226
  11. XOLAIR [Suspect]
     Active Substance: OMALIZUMAB
     Route: 058
     Dates: start: 20190507
  12. XOLAIR [Suspect]
     Active Substance: OMALIZUMAB
     Route: 058
     Dates: start: 20191022
  13. XOLAIR [Suspect]
     Active Substance: OMALIZUMAB
     Route: 058
     Dates: start: 2019
  14. XOLAIR [Suspect]
     Active Substance: OMALIZUMAB
     Route: 058
     Dates: start: 20191217
  15. XOLAIR [Suspect]
     Active Substance: OMALIZUMAB
     Route: 058
     Dates: start: 20191231
  16. XOLAIR [Suspect]
     Active Substance: OMALIZUMAB
     Route: 058
     Dates: start: 20200128
  17. XOLAIR [Suspect]
     Active Substance: OMALIZUMAB
     Route: 058
     Dates: start: 20180717
  18. XOLAIR [Suspect]
     Active Substance: OMALIZUMAB
     Route: 058
  19. XOLAIR [Suspect]
     Active Substance: OMALIZUMAB
     Route: 058
     Dates: start: 20210727
  20. XOLAIR [Suspect]
     Active Substance: OMALIZUMAB
     Route: 058
  21. UNIPHYL [Concomitant]
     Active Substance: THEOPHYLLINE ANHYDROUS
     Indication: Asthma
     Route: 065
  22. XARELTO [Concomitant]
     Active Substance: RIVAROXABAN
     Indication: Product used for unknown indication
     Route: 065
  23. POTASSIUM [Concomitant]
     Active Substance: POTASSIUM
     Indication: Product used for unknown indication

REACTIONS (55)
  - Blood potassium decreased [Unknown]
  - Ligament sprain [Unknown]
  - Mobility decreased [Unknown]
  - Bronchitis [Unknown]
  - Oedema peripheral [Unknown]
  - Pigmentation disorder [Unknown]
  - Illness [Unknown]
  - Hyperhidrosis [Unknown]
  - Sputum discoloured [Not Recovered/Not Resolved]
  - Nasal discharge discolouration [Unknown]
  - Cough [Unknown]
  - Influenza [Unknown]
  - Lung disorder [Unknown]
  - Condition aggravated [Unknown]
  - Pain [Unknown]
  - Dyspnoea [Not Recovered/Not Resolved]
  - Wheezing [Unknown]
  - Bronchospasm [Recovering/Resolving]
  - Blood pressure increased [Unknown]
  - Pulmonary pain [Unknown]
  - Off label use [Unknown]
  - Contusion [Unknown]
  - Weight increased [Recovering/Resolving]
  - Pigmentation disorder [Unknown]
  - Bronchitis [Unknown]
  - Dyspnoea exertional [Not Recovered/Not Resolved]
  - Nasopharyngitis [Unknown]
  - Arthralgia [Unknown]
  - Oedema [Unknown]
  - Burning sensation [Unknown]
  - Vitamin C deficiency [Unknown]
  - Vitamin D deficiency [Unknown]
  - Cellulitis [Unknown]
  - Deep vein thrombosis [Unknown]
  - Anxiety [Unknown]
  - Bronchial secretion retention [Unknown]
  - Pulmonary embolism [Unknown]
  - Pyrexia [Unknown]
  - Illness [Unknown]
  - Gastrooesophageal reflux disease [Unknown]
  - Sinusitis [Recovering/Resolving]
  - Headache [Unknown]
  - Back pain [Unknown]
  - Pulmonary mass [Unknown]
  - Poor quality sleep [Unknown]
  - Peripheral swelling [Unknown]
  - Gastrointestinal disorder [Unknown]
  - Fall [Unknown]
  - Productive cough [Not Recovered/Not Resolved]
  - Weight increased [Unknown]
  - Weight decreased [Unknown]
  - Chills [Unknown]
  - Malaise [Unknown]
  - Scab [Unknown]
  - Asthma [Unknown]

NARRATIVE: CASE EVENT DATE: 20171113
